FAERS Safety Report 23073782 (Version 1)
Quarter: 2023Q4

REPORT INFORMATION
  Report Type: Report from Study
  Country: DE (occurrence: DE)
  Receive Date: 20231017
  Receipt Date: 20231017
  Transmission Date: 20240110
  Serious: Yes (Other)
  Sender: FDA-Public Use
  Company Number: DE-PFM-2023-05644

PATIENT

DRUGS (2)
  1. NERATINIB [Suspect]
     Active Substance: NERATINIB
     Indication: Breast cancer
     Dosage: 240 MG, QD (1/DAY)
     Route: 048
     Dates: start: 20211019
  2. TAMOXIFEN [Concomitant]
     Active Substance: TAMOXIFEN
     Indication: Breast cancer
     Dosage: UNK
     Route: 065
     Dates: start: 20200915

REACTIONS (1)
  - Subclavian vein thrombosis [Recovering/Resolving]

NARRATIVE: CASE EVENT DATE: 20220430
